FAERS Safety Report 23495238 (Version 1)
Quarter: 2024Q1

REPORT INFORMATION
  Report Type: Report from Study
  Country: PR (occurrence: PR)
  Receive Date: 20240207
  Receipt Date: 20240207
  Transmission Date: 20240410
  Serious: Yes (Other)
  Sender: FDA-Public Use
  Company Number: PR-ABBVIE-5618608

PATIENT
  Sex: Female
  Weight: 140.61 kg

DRUGS (3)
  1. HUMIRA [Suspect]
     Active Substance: ADALIMUMAB
     Indication: Rheumatoid arthritis
     Dosage: CITRATE FREE
     Route: 058
     Dates: start: 20220517
  2. LEVOTHYROXINE [Suspect]
     Active Substance: LEVOTHYROXINE\LEVOTHYROXINE SODIUM
     Indication: Thyroid mass
     Dosage: DOSE INCREASED
     Route: 048
  3. LEVOTHYROXINE [Suspect]
     Active Substance: LEVOTHYROXINE\LEVOTHYROXINE SODIUM
     Indication: Thyroid mass
     Route: 048
     Dates: start: 2023

REACTIONS (12)
  - Thyroid mass [Recovered/Resolved]
  - Drug hypersensitivity [Recovering/Resolving]
  - Blood glucose increased [Recovering/Resolving]
  - Pruritus [Recovering/Resolving]
  - Urticaria [Recovering/Resolving]
  - Hyperthyroidism [Recovering/Resolving]
  - Ovarian cyst [Not Recovered/Not Resolved]
  - Malaise [Recovering/Resolving]
  - Adnexa uteri pain [Unknown]
  - Dyspnoea [Unknown]
  - Generalised oedema [Recovering/Resolving]
  - Dysphagia [Unknown]

NARRATIVE: CASE EVENT DATE: 20230101
